FAERS Safety Report 26119331 (Version 1)
Quarter: 2025Q4

REPORT INFORMATION
  Report Type: Report from Study
  Country: CO (occurrence: CO)
  Receive Date: 20251204
  Receipt Date: 20251204
  Transmission Date: 20260117
  Serious: Yes (Death, Life-Threatening)
  Sender: AMGEN
  Company Number: CO-AMGEN-COLSL2025236896

PATIENT
  Age: 88 Year
  Sex: Female

DRUGS (1)
  1. PROLIA [Suspect]
     Active Substance: DENOSUMAB
     Indication: Osteoporosis postmenopausal
     Dosage: 60 MILLIGRAM, Q6MO
     Route: 058
     Dates: start: 20201209, end: 20250527

REACTIONS (2)
  - Osteonecrosis of jaw [Fatal]
  - Systemic infection [Fatal]
